FAERS Safety Report 9151330 (Version 2)
Quarter: 2013Q2

REPORT INFORMATION
  Report Type: Spontaneous
  Country: US (occurrence: US)
  Receive Date: 20130308
  Receipt Date: 20130610
  Transmission Date: 20140414
  Serious: Yes (Other)
  Sender: FDA-Public Use
  Company Number: US-ASTELLAS-2013US001842

PATIENT
  Age: 77 Year
  Sex: Male
  Weight: 107 kg

DRUGS (5)
  1. XTANDI [Suspect]
     Indication: PROSTATE CANCER
     Dosage: 160 MG, UID/QD
     Route: 048
     Dates: start: 20130129, end: 20130130
  2. ARICEPT [Concomitant]
     Indication: COGNITIVE DISORDER
     Dosage: 5 MG, UID/QD
     Route: 048
     Dates: start: 20110927
  3. ARICEPT [Concomitant]
     Indication: DEMENTIA ALZHEIMER^S TYPE
  4. ARICEPT [Concomitant]
     Indication: DEMENTIA
  5. METFORMIN [Concomitant]
     Indication: PRODUCT USED FOR UNKNOWN INDICATION
     Dosage: 500 MG, BID
     Route: 048

REACTIONS (1)
  - Memory impairment [Recovered/Resolved]
